FAERS Safety Report 20213840 (Version 1)
Quarter: 2021Q4

REPORT INFORMATION
  Report Type: Report from Study
  Country: US (occurrence: None)
  Receive Date: 20211221
  Receipt Date: 20211221
  Transmission Date: 20220303
  Serious: Yes (Other)
  Sender: FDA-Public Use
  Company Number: 2021A888995

PATIENT
  Sex: Male
  Weight: 59 kg

DRUGS (1)
  1. FASENRA [Suspect]
     Active Substance: BENRALIZUMAB
     Indication: Asthma
     Dosage: FREQUENCY: AT WEEKS 0, 4, AND 8 FOLLOWED BY EVERY 8 WEEKS THEREAFTER
     Route: 058
     Dates: start: 20211004

REACTIONS (3)
  - COVID-19 pneumonia [Unknown]
  - Thrombosis [Unknown]
  - Weight decreased [Unknown]
